FAERS Safety Report 10059989 (Version 2)
Quarter: 2014Q2

REPORT INFORMATION
  Report Type: Spontaneous
  Country: RU (occurrence: RU)
  Receive Date: 20140404
  Receipt Date: 20140425
  Transmission Date: 20141212
  Serious: Yes (Disabling)
  Sender: FDA-Public Use
  Company Number: RU-B.I. PHARMACEUTICALS,INC./RIDGEFIELD-2014-BI-13474RZ

PATIENT
  Age: 60 Year
  Sex: Male
  Weight: 90 kg

DRUGS (5)
  1. PRADAXA [Suspect]
     Indication: ATRIAL FIBRILLATION
     Dosage: 300 MG
     Route: 048
     Dates: start: 201401, end: 20140228
  2. DIOVAN/VALSARTAN [Concomitant]
     Indication: ESSENTIAL HYPERTENSION
     Dosage: 80 MG
     Route: 065
  3. DIOVAN/VALSARTAN [Concomitant]
     Indication: MYOCARDIAL ISCHAEMIA
  4. CONCOR/BISOPROLOL [Concomitant]
     Indication: ESSENTIAL HYPERTENSION
     Dosage: 5 MG
     Route: 065
  5. CONCOR/BISOPROLOL [Concomitant]
     Indication: ATRIAL FIBRILLATION

REACTIONS (1)
  - Toxic skin eruption [Recovered/Resolved]
